FAERS Safety Report 17869781 (Version 1)
Quarter: 2020Q2

REPORT INFORMATION
  Report Type: Spontaneous
  Country: GB (occurrence: GB)
  Receive Date: 20200608
  Receipt Date: 20200608
  Transmission Date: 20200714
  Serious: Yes (Death)
  Sender: FDA-Public Use
  Company Number: GB-MICRO LABS LIMITED-ML2020-01741

PATIENT
  Age: 81 Year
  Sex: Male

DRUGS (9)
  1. SITAGLIPTIN [Suspect]
     Active Substance: SITAGLIPTIN
  2. ADCAL-D3 [Suspect]
     Active Substance: CALCIUM CARBONATE\CHOLECALCIFEROL
  3. ATORVASTATIN [Suspect]
     Active Substance: ATORVASTATIN
  4. LEVOTHYROXINE. [Suspect]
     Active Substance: LEVOTHYROXINE
  5. OMEPRAZOLE. [Suspect]
     Active Substance: OMEPRAZOLE
  6. ACETYLSALICYLIC ACID [Suspect]
     Active Substance: ASPIRIN
     Route: 048
  7. METFORMIN [Suspect]
     Active Substance: METFORMIN HYDROCHLORIDE
  8. AMLODIPINE [Suspect]
     Active Substance: AMLODIPINE BESYLATE
  9. GLICLAZIDE [Suspect]
     Active Substance: GLICLAZIDE

REACTIONS (3)
  - Hypoglycaemia [Unknown]
  - Death [Fatal]
  - Wrong patient received product [Unknown]
